FAERS Safety Report 13285136 (Version 2)
Quarter: 2017Q2

REPORT INFORMATION
  Report Type: Spontaneous
  Country: JP (occurrence: JP)
  Receive Date: 20170301
  Receipt Date: 20170401
  Transmission Date: 20170830
  Serious: Yes (Other)
  Sender: FDA-Public Use
  Company Number: JP-GE HEALTHCARE LIFE SCIENCES-2017CSU000135

PATIENT

DRUGS (10)
  1. OMNISCAN [Suspect]
     Active Substance: GADODIAMIDE
     Indication: PRODUCT USED FOR UNKNOWN INDICATION
     Dosage: 14 ML, SINGLE
     Route: 042
     Dates: start: 20120106, end: 20120106
  2. OMNISCAN [Suspect]
     Active Substance: GADODIAMIDE
     Dosage: 14 ML, SINGLE
     Route: 042
     Dates: start: 20130430, end: 20130430
  3. OMNISCAN [Suspect]
     Active Substance: GADODIAMIDE
     Dosage: 14 ML, SINGLE
     Route: 042
     Dates: start: 20130116, end: 20130116
  4. OMNISCAN [Suspect]
     Active Substance: GADODIAMIDE
     Dosage: 14 ML, SINGLE
     Route: 042
     Dates: start: 20120124, end: 20120124
  5. OMNISCAN [Suspect]
     Active Substance: GADODIAMIDE
     Dosage: 14 ML, SINGLE
     Route: 042
     Dates: start: 20120926, end: 20120926
  6. OMNISCAN [Suspect]
     Active Substance: GADODIAMIDE
     Dosage: 14 ML, SINGLE
     Route: 042
     Dates: start: 20130806, end: 20130806
  7. OMNISCAN [Suspect]
     Active Substance: GADODIAMIDE
     Dosage: 14 ML, SINGLE
     Route: 042
     Dates: start: 20120627, end: 20130627
  8. OMNISCAN [Suspect]
     Active Substance: GADODIAMIDE
     Dosage: 14 ML, SINGLE
     Route: 042
     Dates: start: 20120327, end: 20120327
  9. OMNISCAN [Suspect]
     Active Substance: GADODIAMIDE
     Dosage: 14 ML, SINGLE
     Route: 042
     Dates: start: 20120116, end: 20120116
  10. OMNISCAN [Suspect]
     Active Substance: GADODIAMIDE
     Dosage: UNK

REACTIONS (1)
  - Nuclear magnetic resonance imaging brain abnormal [Not Recovered/Not Resolved]
